FAERS Safety Report 6052974-3 (Version None)
Quarter: 2009Q1

REPORT INFORMATION
  Report Type: 
  Country: None (occurrence: None)
  Receive Date: 20090127
  Receipt Date: 20081031
  Transmission Date: 20090719
  Serious: No
  Sender: FDA-Public Use
  Company Number: US-ABBOTT-08P-163-0485154-00

PATIENT
  Sex: Male

DRUGS (2)
  1. LUPRON DEPOT [Suspect]
     Indication: PROSTATE CANCER
     Route: 030
  2. DARIFENACIN [Concomitant]
     Indication: HYPERTONIC BLADDER
     Route: 048

REACTIONS (2)
  - GAIT DISTURBANCE [None]
  - PAIN [None]
